FAERS Safety Report 19684622 (Version 1)
Quarter: 2021Q3

REPORT INFORMATION
  Report Type: Spontaneous
  Country: US (occurrence: US)
  Receive Date: 20210811
  Receipt Date: 20210811
  Transmission Date: 20211014
  Serious: No
  Sender: FDA-Public Use
  Company Number: None

PATIENT
  Age: 32 Year
  Sex: Male
  Weight: 103.5 kg

DRUGS (3)
  1. NORCO [Suspect]
     Active Substance: ACETAMINOPHEN\HYDROCODONE BITARTRATE
     Indication: PROCEDURAL PAIN
     Dosage: ?          QUANTITY:1 TABLET(S);?
     Route: 048
     Dates: start: 20210803
  2. NICOTINE PATCH 14 MG [Concomitant]
  3. TUMS [Concomitant]
     Active Substance: CALCIUM CARBONATE

REACTIONS (2)
  - Ejaculation delayed [None]
  - Anorgasmia [None]

NARRATIVE: CASE EVENT DATE: 20210811
